FAERS Safety Report 9363595 (Version 5)
Quarter: 2014Q1

REPORT INFORMATION
  Report Type: Report from Study
  Country: US (occurrence: US)
  Receive Date: 20130624
  Receipt Date: 20140131
  Transmission Date: 20141002
  Serious: Yes (Hospitalization, Other)
  Sender: FDA-Public Use
  Company Number: PHEH2013US013277

PATIENT
  Age: 44 Year
  Sex: Female

DRUGS (14)
  1. GILENYA [Suspect]
     Indication: MULTIPLE SCLEROSIS
     Dosage: 0.5 MG, QD
     Route: 048
     Dates: start: 20120502
  2. GILENYA [Suspect]
     Dosage: 0.5 MG, BID
     Route: 048
     Dates: end: 20131227
  3. MS CONTIN [Concomitant]
     Indication: PAIN IN EXTREMITY
     Dosage: 30 MG, BID
  4. MS CONTIN [Concomitant]
     Dosage: 60 MG, BID
  5. PERCOCET [Concomitant]
     Dosage: 7.5 MG, TID
     Route: 048
  6. ATIVAN [Concomitant]
     Route: 048
  7. GABAPENTIN [Concomitant]
  8. LUNESTA [Concomitant]
     Indication: SLEEP DISORDER
     Dosage: 3 MG, QD
  9. CELEXA [Concomitant]
     Indication: ANXIETY
     Dosage: 40 MG, QD
  10. CELEXA [Concomitant]
     Indication: DEPRESSION
  11. ALBUTEROL [Concomitant]
  12. PROTONIX [Concomitant]
     Indication: GASTROOESOPHAGEAL REFLUX DISEASE
     Dosage: 20 MG, QD
  13. LEVOTHYROXINE [Concomitant]
     Indication: HYPOTHYROIDISM
     Dosage: 125 UG, QD
  14. VITAMIN B12 [Concomitant]
     Dosage: 1000 UG, QW
     Route: 065

REACTIONS (16)
  - Nervous system disorder [Unknown]
  - Vision blurred [Not Recovered/Not Resolved]
  - Feeling abnormal [Not Recovered/Not Resolved]
  - Transient ischaemic attack [Recovered/Resolved]
  - Dysarthria [Recovered/Resolved]
  - Memory impairment [Recovered/Resolved]
  - Malaise [Unknown]
  - Visual impairment [Recovered/Resolved]
  - Neuralgia [Unknown]
  - Back pain [Unknown]
  - Pain in extremity [Unknown]
  - Hyperaesthesia [Unknown]
  - General physical health deterioration [Not Recovered/Not Resolved]
  - Urinary tract infection [Unknown]
  - Headache [Unknown]
  - Prescribed overdose [Unknown]
